FAERS Safety Report 9880597 (Version 2)
Quarter: 2014Q2

REPORT INFORMATION
  Report Type: Spontaneous
  Country: DE (occurrence: None)
  Receive Date: 20140205
  Receipt Date: 20140416
  Transmission Date: 20141212
  Serious: Yes (Other)
  Sender: FDA-Public Use
  Company Number: 7265899

PATIENT
  Age: 60 Year
  Sex: Female

DRUGS (2)
  1. EUTHYROX [Suspect]
     Indication: HYPOTHYROIDISM
     Route: 048
  2. VALSARTAN (VALSARTAN) (VALSARTAN) [Concomitant]

REACTIONS (2)
  - Blood pressure increased [None]
  - Intervertebral disc protrusion [None]
